FAERS Safety Report 7646438-0 (Version None)
Quarter: 2011Q3

REPORT INFORMATION
  Report Type: 
  Country: None (occurrence: None)
  Receive Date: 20110801
  Receipt Date: 20110721
  Transmission Date: 20111222
  Serious: Yes (Other)
  Sender: FDA-Public Use
  Company Number: US-JNJFOC-20101202147

PATIENT
  Sex: Female
  Weight: 81.65 kg

DRUGS (2)
  1. NUCYNTA [Suspect]
     Indication: SURGERY
     Dosage: EVERY 4-6 HOURS AS NEEDED
     Route: 048
     Dates: start: 20101012, end: 20101012
  2. ANAPROX [Concomitant]
     Indication: ARTHRITIS
     Dosage: AS NEEDED
     Route: 048
     Dates: start: 20100101

REACTIONS (2)
  - APNOEA [None]
  - SUFFOCATION FEELING [None]
